FAERS Safety Report 5501502-7 (Version None)
Quarter: 2007Q4

REPORT INFORMATION
  Report Type: 
  Country: None (occurrence: None)
  Receive Date: 20071030
  Receipt Date: 20071018
  Transmission Date: 20080405
  Serious: Yes (Hospitalization)
  Sender: FDA-Public Use
  Company Number: US-JNJFOC-20070705352

PATIENT
  Sex: Female
  Weight: 48.99 kg

DRUGS (1)
  1. REMICADE [Suspect]
     Indication: CROHN'S DISEASE
     Route: 042

REACTIONS (4)
  - ADENOIDITIS [None]
  - BRONCHITIS CHRONIC [None]
  - CHRONIC SINUSITIS [None]
  - PHARYNGITIS [None]
